FAERS Safety Report 6102231-1 (Version None)
Quarter: 2009Q1

REPORT INFORMATION
  Report Type: 
  Country: None (occurrence: None)
  Receive Date: 20090227
  Receipt Date: 20080304
  Transmission Date: 20090719
  Serious: Yes (Other)
  Sender: FDA-Public Use
  Company Number: 551439

PATIENT
  Age: 15 Year
  Sex: Female

DRUGS (2)
  1. ACCUTANE [Suspect]
     Indication: ACNE
     Dosage: 40 MG 2 PER DAY ORAL
     Route: 048
     Dates: end: 20080304
  2. YAZ (DROSPIRENONE/ESTRADIOL) [Concomitant]

REACTIONS (12)
  - ARTHRALGIA [None]
  - DEPRESSION [None]
  - DRY EYE [None]
  - DRY SKIN [None]
  - ECZEMA [None]
  - EPISTAXIS [None]
  - EYE PAIN [None]
  - HEADACHE [None]
  - LIP DRY [None]
  - MOOD SWINGS [None]
  - VISION BLURRED [None]
  - XEROSIS [None]
